FAERS Safety Report 16374938 (Version 1)
Quarter: 2019Q2

REPORT INFORMATION
  Report Type: Spontaneous
  Country: AR (occurrence: AR)
  Receive Date: 20190531
  Receipt Date: 20190531
  Transmission Date: 20190711
  Serious: Yes (Death)
  Sender: FDA-Public Use
  Company Number: AR-ASTELLAS-2019US022840

PATIENT
  Sex: Female

DRUGS (2)
  1. TACROLIMUS. [Suspect]
     Active Substance: TACROLIMUS
     Indication: PROPHYLAXIS AGAINST TRANSPLANT REJECTION
     Route: 065
  2. METHYLPREDNISOLONE SODIUM SUCCINATE. [Suspect]
     Active Substance: METHYLPREDNISOLONE SODIUM SUCCINATE
     Indication: PROPHYLAXIS AGAINST TRANSPLANT REJECTION
     Route: 065

REACTIONS (14)
  - Mechanical ventilation [Fatal]
  - Dehydration [Fatal]
  - Diarrhoea [Fatal]
  - Nausea [Fatal]
  - Petechiae [Fatal]
  - Abdominal distension [Fatal]
  - Strongyloidiasis [Fatal]
  - Leukopenia [Fatal]
  - Surgery [Fatal]
  - Vomiting [Fatal]
  - Abdominal pain [Fatal]
  - Dyspnoea [Fatal]
  - Lymphocele [Fatal]
  - Purpura [Fatal]
